FAERS Safety Report 8979777 (Version 1)
Quarter: 2012Q4

REPORT INFORMATION
  Report Type: 
  Country: BR (occurrence: BR)
  Receive Date: 20121221
  Receipt Date: 20121221
  Transmission Date: 20130627
  Serious: Yes (Other)
  Sender: FDA-Public Use
  Company Number: PHHY2012BR117103

PATIENT
  Age: 18 Year
  Sex: Male

DRUGS (1)
  1. TEGRETOL CR [Suspect]
     Indication: CONVULSION
     Dosage: 2 DF, BID
     Route: 048

REACTIONS (2)
  - Ear infection [Recovering/Resolving]
  - Skin exfoliation [Not Recovered/Not Resolved]
